FAERS Safety Report 9024892 (Version 3)
Quarter: 2013Q2

REPORT INFORMATION
  Report Type: Spontaneous
  Country: US (occurrence: US)
  Receive Date: 20130121
  Receipt Date: 20130424
  Transmission Date: 20140414
  Serious: No
  Sender: FDA-Public Use
  Company Number: US-BIOGENIDEC-2013BI003066

PATIENT
  Sex: Female

DRUGS (6)
  1. AVONEX [Suspect]
     Indication: MULTIPLE SCLEROSIS
     Route: 030
     Dates: start: 20110903, end: 20130202
  2. AVONEX [Suspect]
     Indication: MULTIPLE SCLEROSIS
     Route: 030
     Dates: start: 20130411
  3. PHENAVOPYRIDINE HCL [Concomitant]
     Indication: URINARY TRACT INFECTION
  4. BACLOFEN [Concomitant]
     Indication: TREMOR
  5. LISINOPRIL [Concomitant]
     Indication: HYPERTENSION
  6. ESTRADIOL [Concomitant]
     Indication: HORMONE REPLACEMENT THERAPY

REACTIONS (2)
  - Paralysis [Recovered/Resolved]
  - Asthenia [Not Recovered/Not Resolved]
